FAERS Safety Report 7437194-X (Version None)
Quarter: 2011Q2

REPORT INFORMATION
  Report Type: 
  Country: None (occurrence: None)
  Receive Date: 20110426
  Receipt Date: 20090501
  Transmission Date: 20111010
  Serious: Yes (Hospitalization, Other)
  Sender: FDA-Public Use
  Company Number: US-BAYER-200920130NA

PATIENT
  Age: 60 Year
  Sex: Female
  Weight: 86.168 kg

DRUGS (42)
  1. METFORMIN [Concomitant]
     Dosage: 500 MG, BID, LONG TERM USE
     Route: 048
  2. DOBUTAMINE HCL [Concomitant]
     Indication: HYPOTENSION
     Dosage: UNK
     Route: 041
     Dates: start: 20070913
  3. PHENYLEPHRINE HCL [Concomitant]
     Dosage: INCREASED
     Route: 041
     Dates: start: 20070913
  4. TRASYLOL [Suspect]
     Indication: INTRA-AORTIC BALLOON PLACEMENT
     Dosage: UNK, BOLUS LOADING DOSE
     Route: 042
     Dates: start: 20070913, end: 20070913
  5. IBUPROFEN [Concomitant]
     Indication: BACK PAIN
     Dosage: LONG TERM USE
     Route: 048
  6. ADVIL LIQUI-GELS [Concomitant]
     Dosage: LONG TERM USE
     Route: 048
  7. POTASSIUM CHLORIDE [Concomitant]
     Dosage: 10 MEQ, BID, LONG TERM USE
  8. SOMA [Concomitant]
     Indication: PAIN
     Dosage: 350 MG, TWICE A MONTH, LONG TERM USE
  9. MILRINONE [Concomitant]
     Indication: HYPOTENSION
     Dosage: UNK
     Route: 041
     Dates: start: 20070913
  10. TRIAMTERENE [Concomitant]
     Indication: HYPERTENSION
     Dosage: 12.5 MG, LONG TERM USE
     Route: 048
  11. AMITRIPTYLINE [Concomitant]
     Dosage: ONE TO TWO TABLETS AT BED TIME, PRN, LONG TERM USE
     Route: 048
  12. DOBUTAMINE HCL [Concomitant]
     Dosage: INCREASED
     Route: 041
     Dates: start: 20070913
  13. ALBUMIN (HUMAN) [Concomitant]
     Dosage: BOLUS
     Dates: start: 20070915
  14. BUMEX [Concomitant]
     Dosage: UNK
     Route: 042
     Dates: start: 20070915
  15. HEPARIN [Concomitant]
     Dosage: 22000 U, UNK
     Route: 042
     Dates: start: 20070913
  16. ESTRADIOL [Concomitant]
     Dosage: 0.5 MG, QD, LONG TERM USE
     Route: 048
  17. AMBIEN [Concomitant]
     Dosage: 5 MG, PRN, LONG TERM USE
     Route: 048
  18. MILRINONE [Concomitant]
     Dosage: UNK
     Dates: start: 20070915
  19. LASIX [Concomitant]
     Dosage: UNK
     Dates: start: 20070915
  20. HEPARIN [Concomitant]
     Dosage: 10000 U, UNK
     Route: 042
     Dates: start: 20070913
  21. SODIUM CHLORIDE [Concomitant]
     Dosage: 1000 ML, X 7
     Route: 042
     Dates: start: 20070913
  22. TRASYLOL [Suspect]
     Dosage: UNK, INFUSION
     Route: 042
     Dates: start: 20070913, end: 20070913
  23. FLUOXETINE [Concomitant]
     Dosage: 20 MG, TID, LONG TERM USE
     Route: 048
  24. ISOVUE-128 [Concomitant]
     Indication: CATHETERISATION CARDIAC
     Dosage: 220 ML, UNK
     Dates: start: 20070912
  25. RED BLOOD CELLS [Concomitant]
     Dosage: 4 U, UNK
     Route: 042
     Dates: start: 20070913
  26. PROTAMINE SULFATE [Concomitant]
     Dosage: 180 MG, UNK
     Route: 042
     Dates: start: 20070913
  27. TRASYLOL [Suspect]
     Indication: AORTIC VALVE REPLACEMENT
     Dosage: 200 ML, PUMP PRIME
     Route: 042
     Dates: start: 20070913, end: 20070913
  28. PENICILLIN [Concomitant]
     Dosage: 500 MG, PRN
     Dates: start: 20070912
  29. BYETTA [Concomitant]
     Dosage: 5 U, TID
     Route: 058
  30. HEPARIN [Concomitant]
     Dosage: 6000 U, UNK
     Route: 042
     Dates: start: 20070913
  31. NORMAL SALINE [Concomitant]
     Dosage: 500 ML, UNK
     Dates: start: 20070915
  32. ALBUTEROL [Concomitant]
     Indication: ASTHMA
     Dosage: 2.5 MG, BID, INHALATION, LONG TERM USE
     Route: 055
  33. LEVOTHYROXINE SODIUM [Concomitant]
     Indication: THYROID DISORDER
     Dosage: 10 ?G, QD, LONG TERM USE
     Route: 048
  34. FUROSEMIDE [Concomitant]
     Indication: HYPERTENSION
  35. TRAZODONE [Concomitant]
     Dosage: 50 MG, QD, LONG TERM USE
     Route: 048
  36. PENICILLIN [Concomitant]
     Indication: VIRAL UPPER RESPIRATORY TRACT INFECTION
     Dosage: 500 MG, AS NEEDED WHENVER SHE FELT A COLD WAS COMING ON , LONG TERM USE
     Route: 048
  37. ACETYLSALICYLIC ACID SRT [Concomitant]
     Dosage: 325 MG, QD, LONG TERM USE
     Route: 048
  38. SOLUTIONS FOR PARENTERAL NUTRITION [Concomitant]
     Dosage: UNK
     Dates: start: 20070915
  39. ABILIFY [Concomitant]
     Dosage: LONG TERM USE
     Route: 048
  40. INSULIN [Concomitant]
     Indication: DIABETES MELLITUS
     Dosage: 25 U, 70/30, LONG TERM USE
     Route: 058
  41. FUROSEMIDE [Concomitant]
     Indication: CARDIAC FAILURE CONGESTIVE
     Dosage: 40 MG, BID, LONG TERM USE
     Route: 048
  42. ADVAIR DISKUS 100/50 [Concomitant]
     Dosage: 250/50 TWO PUFFS, QD, LONG TERM USE
     Route: 055

REACTIONS (11)
  - EMOTIONAL DISTRESS [None]
  - STRESS [None]
  - ANHEDONIA [None]
  - FEAR [None]
  - RENAL FAILURE [None]
  - RENAL IMPAIRMENT [None]
  - ANXIETY [None]
  - PAIN [None]
  - RENAL INJURY [None]
  - UNEVALUABLE EVENT [None]
  - INJURY [None]
